FAERS Safety Report 7618211-0 (Version None)
Quarter: 2011Q3

REPORT INFORMATION
  Report Type: 
  Country: None (occurrence: None)
  Receive Date: 20110718
  Receipt Date: 20110712
  Transmission Date: 20111222
  Serious: Yes (Other)
  Sender: FDA-Public Use
  Company Number: US-GLAXOSMITHKLINE-A0936492A

PATIENT
  Age: 53 Year
  Sex: Female

DRUGS (4)
  1. FLOVENT [Suspect]
     Indication: DYSPNOEA
     Dosage: 2PUFF TWICE PER DAY
     Route: 055
     Dates: start: 20110628, end: 20110628
  2. LISINOPRIL [Concomitant]
  3. ALBUTEROL SULFATE AUTOHALER [Concomitant]
  4. PROPRANOLOL [Concomitant]

REACTIONS (9)
  - IRRITABILITY [None]
  - RHINORRHOEA [None]
  - EAR INFECTION [None]
  - COUGH [None]
  - SWELLING FACE [None]
  - ASTHMA [None]
  - SINUSITIS [None]
  - EYE PRURITUS [None]
  - SINUS HEADACHE [None]
